FAERS Safety Report 20688343 (Version 2)
Quarter: 2022Q2

REPORT INFORMATION
  Report Type: Spontaneous
  Country: US (occurrence: US)
  Receive Date: 20220408
  Receipt Date: 20220510
  Transmission Date: 20220720
  Serious: No
  Sender: FDA-Public Use
  Company Number: US-MLMSERVICE-20220322-3446338-1

PATIENT
  Age: 19 Year
  Sex: Female

DRUGS (7)
  1. FEXOFENADINE HYDROCHLORIDE [Suspect]
     Active Substance: FEXOFENADINE HYDROCHLORIDE
     Indication: Mast cell activation syndrome
     Dosage: UNK
  2. LORATADINE [Suspect]
     Active Substance: LORATADINE
     Indication: Mast cell activation syndrome
  3. DIPHENHYDRAMINE [Suspect]
     Active Substance: DIPHENHYDRAMINE
     Indication: Mast cell activation syndrome
  4. FAMOTIDINE [Suspect]
     Active Substance: FAMOTIDINE
     Indication: Mast cell activation syndrome
  5. RANITIDINE [Suspect]
     Active Substance: RANITIDINE
     Indication: Mast cell activation syndrome
  6. CETIRIZINE HYDROCHLORIDE [Suspect]
     Active Substance: CETIRIZINE HYDROCHLORIDE
     Indication: Mast cell activation syndrome
  7. LEVOCETIRIZINE [Suspect]
     Active Substance: LEVOCETIRIZINE
     Indication: Mast cell activation syndrome

REACTIONS (3)
  - Cerebral disorder [Recovering/Resolving]
  - Cognitive disorder [Recovering/Resolving]
  - Condition aggravated [Recovering/Resolving]
